FAERS Safety Report 6906160-2 (Version None)
Quarter: 2010Q3

REPORT INFORMATION
  Report Type: 
  Country: None (occurrence: None)
  Receive Date: 20100804
  Receipt Date: 20100726
  Transmission Date: 20110219
  Serious: Yes (Other)
  Sender: FDA-Public Use
  Company Number: JP-MERCK-1007USA01941

PATIENT
  Age: 90 Year
  Sex: Female

DRUGS (5)
  1. PRIMAXIN [Suspect]
     Indication: PNEUMONIA
     Route: 042
     Dates: start: 20100607
  2. CONIEL [Concomitant]
     Route: 048
  3. FELNABION [Concomitant]
     Route: 061
  4. TAMIFLU [Concomitant]
     Route: 048
  5. MINODRONIC ACID [Concomitant]
     Route: 048

REACTIONS (2)
  - DELUSION [None]
  - HALLUCINATION [None]
